FAERS Safety Report 5466372-4 (Version None)
Quarter: 2007Q3

REPORT INFORMATION
  Report Type: 
  Country: None (occurrence: None)
  Receive Date: 20070920
  Receipt Date: 20070920
  Transmission Date: 20080115
  Serious: Yes (Other)
  Sender: FDA-Public Use
  Company Number: 674

PATIENT
  Age: 75 Year
  Sex: Male
  Weight: 61.2356 kg

DRUGS (10)
  1. AMIODARONE HCL [Suspect]
     Indication: ATRIAL FIBRILLATION
     Dosage: 400 MG QD, PO
     Route: 048
     Dates: start: 20070816
  2. AMIODARONE HCL [Suspect]
     Indication: ATRIAL FIBRILLATION
     Dosage: 200 MG QD, PO
     Route: 048
     Dates: start: 20070830
  3. COUMADIN [Concomitant]
  4. TOPROL-XL [Concomitant]
  5. LASIX [Concomitant]
  6. ZOCOR [Concomitant]
  7. NIACIN [Concomitant]
  8. PROSCAR [Concomitant]
  9. UROXATRAL [Concomitant]
  10. VALIUM [Concomitant]

REACTIONS (1)
  - DEAFNESS [None]
